FAERS Safety Report 13251689 (Version 5)
Quarter: 2018Q4

REPORT INFORMATION
  Report Type: Spontaneous
  Country: US (occurrence: US)
  Receive Date: 20170220
  Receipt Date: 20181129
  Transmission Date: 20190204
  Serious: Yes (Other)
  Sender: FDA-Public Use
  Company Number: US-PFIZER INC-2016258674

PATIENT
  Age: 55 Year
  Sex: Male
  Weight: 89 kg

DRUGS (8)
  1. LYRICA [Suspect]
     Active Substance: PREGABALIN
     Indication: SPINAL OSTEOARTHRITIS
     Dosage: 200 MG, 3X/DAY DAY (1 CAPSULE BY MOUTH 3 TIMES A DAY)
     Route: 048
  2. AMBIEN [Concomitant]
     Active Substance: ZOLPIDEM TARTRATE
     Indication: INSOMNIA
     Dosage: 10 MG, ONCE A DAY (AT NIGHT, STARTED TAKING 6 YEARS AGO)
     Route: 048
  3. LYRICA [Suspect]
     Active Substance: PREGABALIN
     Indication: INTERVERTEBRAL DISC DEGENERATION
     Dosage: 150 MG, 3X/DAY (1 CAP(S) 90 DAYS)
     Route: 048
  4. LYRICA [Suspect]
     Active Substance: PREGABALIN
     Indication: SACRAL RADICULOPATHY
     Dosage: UNK (TAKING IT SPORADICALLY)
     Dates: start: 2016, end: 20160511
  5. FLEXERIL [Concomitant]
     Active Substance: CYCLOBENZAPRINE HYDROCHLORIDE
     Indication: MUSCLE SPASMS
     Dosage: 10 MG, 3X/DAY (STARTED TAKING 8 YEARS AGO)
     Route: 048
  6. LYRICA [Suspect]
     Active Substance: PREGABALIN
     Indication: NEURALGIA
     Dosage: 300 MG, DAILY (EVERYDAY)
     Dates: start: 201512, end: 2016
  7. XANAX [Concomitant]
     Active Substance: ALPRAZOLAM
     Indication: ANXIETY
     Dosage: 1 MG, 3X/DAY (STARTED TAKING 8 YEARS AGO)
     Route: 048
  8. HYDROCODONE [Concomitant]
     Active Substance: HYDROCODONE
     Indication: PAIN
     Dosage: 60 MG, DAILY (10 MG, 6 TIMES DAILY, STARTED TAKING 8 YEARS AGO)
     Route: 048

REACTIONS (3)
  - Osteomyelitis [Unknown]
  - Intentional product misuse [Unknown]
  - Gait inability [Unknown]
